FAERS Safety Report 9727796 (Version 1)
Quarter: 2013Q4

REPORT INFORMATION
  Report Type: Report from Study
  Country: DE (occurrence: DE)
  Receive Date: 20131204
  Receipt Date: 20131204
  Transmission Date: 20140711
  Serious: Yes (Hospitalization)
  Sender: FDA-Public Use
  Company Number: DE-PFIZER INC-2013340138

PATIENT
  Age: 58 Year
  Sex: Male

DRUGS (2)
  1. INLYTA [Suspect]
     Indication: RENAL CELL CARCINOMA
     Dosage: 8 MG, 2X/DAY (IN THE MORNING AND IN THE EVENING)
     Dates: start: 20130823, end: 20131002
  2. INLYTA [Suspect]
     Dosage: 18 MG, 2X/DAY (IN THE MORNING AND IN THE EVENING)
     Dates: start: 20131003, end: 20131126

REACTIONS (1)
  - Intracardiac thrombus [Unknown]
